FAERS Safety Report 9230483 (Version 2)
Quarter: 2013Q4

REPORT INFORMATION
  Report Type: Report from Study
  Country: JP (occurrence: JP)
  Receive Date: 20130415
  Receipt Date: 20131204
  Transmission Date: 20140711
  Serious: Yes (Other)
  Sender: FDA-Public Use
  Company Number: PHHY2012JP120319

PATIENT
  Age: 42 Year
  Sex: Male

DRUGS (67)
  1. LEPONEX / CLOZARIL [Suspect]
     Indication: SCHIZOPHRENIA, PARANOID TYPE
     Dosage: 12.5 MG
     Route: 048
     Dates: start: 20120508, end: 20120508
  2. LEPONEX / CLOZARIL [Suspect]
     Dosage: 25 MG
     Route: 048
     Dates: start: 20120509, end: 20120511
  3. LEPONEX / CLOZARIL [Suspect]
     Dosage: 50 MG
     Route: 048
     Dates: start: 20120512, end: 20120514
  4. LEPONEX / CLOZARIL [Suspect]
     Dosage: 75 MG
     Route: 048
     Dates: start: 20120515, end: 20120516
  5. LEPONEX / CLOZARIL [Suspect]
     Dosage: 100 MG
     Route: 048
     Dates: start: 20120517, end: 20120518
  6. LEPONEX / CLOZARIL [Suspect]
     Dosage: 125 MG
     Route: 048
     Dates: start: 20120519, end: 20120521
  7. LEPONEX / CLOZARIL [Suspect]
     Dosage: 150 MG
     Route: 048
     Dates: start: 20120522, end: 20120524
  8. LEPONEX / CLOZARIL [Suspect]
     Dosage: 175 MG
     Route: 048
     Dates: start: 20120525, end: 20120527
  9. LEPONEX / CLOZARIL [Suspect]
     Dosage: 200 MG
     Route: 048
     Dates: start: 20120528, end: 20120531
  10. LEPONEX / CLOZARIL [Suspect]
     Dosage: 250 MG
     Route: 048
     Dates: start: 20120601, end: 20120605
  11. LEPONEX / CLOZARIL [Suspect]
     Dosage: 300 MG
     Route: 048
     Dates: start: 20120606, end: 20120710
  12. LEPONEX / CLOZARIL [Suspect]
     Dosage: 325 MG
     Route: 048
     Dates: start: 20120711, end: 20120814
  13. LEPONEX / CLOZARIL [Suspect]
     Dosage: 350 MG
     Route: 048
     Dates: start: 20120815, end: 20120907
  14. LEPONEX / CLOZARIL [Suspect]
     Dosage: 375 MG
     Route: 048
     Dates: start: 20120908, end: 20120925
  15. LEPONEX / CLOZARIL [Suspect]
     Dosage: 400 MG
     Route: 048
     Dates: start: 20120926, end: 20121206
  16. LEPONEX / CLOZARIL [Suspect]
     Dosage: 450 MG
     Route: 048
     Dates: start: 20121206, end: 20121224
  17. LEPONEX / CLOZARIL [Suspect]
     Dosage: 12.5 MG
     Route: 048
     Dates: start: 20121227, end: 20121227
  18. LEPONEX / CLOZARIL [Suspect]
     Dosage: 25 MG
     Route: 048
     Dates: start: 20121228, end: 20121230
  19. LEPONEX / CLOZARIL [Suspect]
     Dosage: 50 MG
     Route: 048
     Dates: start: 20121231, end: 20130102
  20. LEPONEX / CLOZARIL [Suspect]
     Dosage: 75 MG
     Route: 048
     Dates: start: 20130103, end: 20130104
  21. LEPONEX / CLOZARIL [Suspect]
     Dosage: 100 MG
     Route: 048
     Dates: start: 20130105, end: 20130106
  22. LEPONEX / CLOZARIL [Suspect]
     Dosage: 125 MG
     Route: 048
     Dates: start: 20130107, end: 20130109
  23. LEPONEX / CLOZARIL [Suspect]
     Dosage: 150 MG
     Route: 048
     Dates: start: 20130110, end: 20130112
  24. LEPONEX / CLOZARIL [Suspect]
     Dosage: 175 MG
     Route: 048
     Dates: start: 20130113, end: 20130115
  25. LEPONEX / CLOZARIL [Suspect]
     Dosage: 200 MG
     Route: 048
     Dates: start: 20130116, end: 20130122
  26. LEPONEX / CLOZARIL [Suspect]
     Dosage: 250 MG
     Route: 048
     Dates: start: 20130123, end: 20130205
  27. LEPONEX / CLOZARIL [Suspect]
     Dosage: 300 MG
     Route: 048
     Dates: start: 20130206, end: 20130219
  28. LEPONEX / CLOZARIL [Suspect]
     Dosage: 350 MG
     Route: 048
     Dates: start: 20130220, end: 20130305
  29. LEPONEX / CLOZARIL [Suspect]
     Dosage: 400 MG
     Route: 048
     Dates: start: 20130306, end: 20130416
  30. LEPONEX / CLOZARIL [Suspect]
     Dosage: 450 MG
     Route: 048
     Dates: start: 20130417
  31. SERENACE [Concomitant]
  32. HALOPERIDOL [Concomitant]
     Dosage: 35 MG
     Route: 048
     Dates: start: 20120508
  33. HALOPERIDOL [Concomitant]
     Dosage: 30 MG
     Route: 048
  34. HALOPERIDOL [Concomitant]
     Dosage: 25 MG
     Route: 048
  35. HALOPERIDOL [Concomitant]
     Dosage: 20 MG
     Route: 048
  36. HALOPERIDOL [Concomitant]
     Dosage: 10 MG
     Route: 048
     Dates: end: 20120601
  37. LEVOMEPROMAZINE MALEATE [Concomitant]
     Dosage: 350 MG
     Route: 048
     Dates: start: 20120508
  38. LEVOMEPROMAZINE MALEATE [Concomitant]
     Dosage: 310 MG
     Route: 048
  39. LEVOMEPROMAZINE MALEATE [Concomitant]
     Dosage: 270 MG
     Route: 048
  40. LEVOMEPROMAZINE MALEATE [Concomitant]
     Dosage: 230 MG
     Route: 048
  41. LEVOMEPROMAZINE MALEATE [Concomitant]
     Dosage: 140 MG
     Route: 048
  42. LEVOMEPROMAZINE MALEATE [Concomitant]
     Dosage: 70 MG
     Dates: end: 20120604
  43. CHLORPROMAZINE HYDROCHLORIDE [Concomitant]
     Dosage: 50 MG, UNK
     Route: 048
     Dates: start: 20120508
  44. CHLORPROMAZINE HYDROCHLORIDE [Concomitant]
     Dosage: 37.5 MG
     Route: 048
     Dates: end: 20120601
  45. BLONANSERIN [Concomitant]
     Dosage: 32 MG
     Route: 048
     Dates: start: 20120508
  46. BLONANSERIN [Concomitant]
     Dosage: 24 MG
     Route: 048
     Dates: end: 20120604
  47. BROMAZEPAM [Concomitant]
     Indication: SCHIZOPHRENIA, PARANOID TYPE
     Dosage: 20 MG
     Route: 048
     Dates: start: 20120508
  48. BROMAZEPAM [Concomitant]
     Dosage: 10 MG
     Route: 048
  49. BROMAZEPAM [Concomitant]
     Dosage: 05 MG
     Route: 048
     Dates: end: 20120827
  50. CARBAMAZEPINE [Concomitant]
     Indication: SCHIZOPHRENIA, PARANOID TYPE
     Dosage: 500 MG
     Route: 048
     Dates: start: 20120508
  51. CARBAMAZEPINE [Concomitant]
     Dosage: 800 MG
     Route: 048
  52. CARBAMAZEPINE [Concomitant]
     Dosage: 400 MG
     Route: 048
     Dates: end: 20121112
  53. TRAZODONE HYDROCHLORIDE [Concomitant]
     Indication: SCHIZOPHRENIA, PARANOID TYPE
     Dosage: 25 MG
     Route: 048
     Dates: start: 20120508
  54. SENNOSIDE [Concomitant]
     Indication: CONSTIPATION
     Dosage: 24 MG
     Route: 048
     Dates: start: 20120508
  55. NIZATIDINE [Concomitant]
     Indication: CONSTIPATION
     Dosage: 300 MG
     Route: 048
     Dates: start: 20120508
  56. MAGNESIUM SALT [Concomitant]
     Indication: CONSTIPATION
     Dosage: 1000 MG
     Route: 048
     Dates: start: 20120508
  57. PHENOBARBITAL [Concomitant]
     Indication: SCHIZOPHRENIA, PARANOID TYPE
     Dosage: 120 MG
     Route: 048
     Dates: start: 20120508
  58. PHENOBARBITAL [Concomitant]
     Dosage: 90 MG
     Route: 048
  59. PHENOBARBITAL [Concomitant]
     Dosage: 120 MG
  60. FLUNITRAZEPAM [Concomitant]
     Indication: SCHIZOPHRENIA, PARANOID TYPE
     Dosage: 02 MG
     Route: 048
     Dates: start: 20120602
  61. LITHIUM CARBONATE [Concomitant]
     Indication: SCHIZOPHRENIA, PARANOID TYPE
     Dosage: 400 MG
     Route: 048
     Dates: start: 20121013
  62. LITHIUM CARBONATE [Concomitant]
     Dosage: 800 MG
     Route: 048
  63. LITHIUM CARBONATE [Concomitant]
     Dosage: 1000 MG
     Route: 048
  64. LITHIUM CARBONATE [Concomitant]
     Dosage: 1200 MG
     Route: 048
  65. LITHIUM CARBONATE [Concomitant]
     Dosage: 600 MG
     Route: 048
     Dates: end: 20120114
  66. BIPERIDEN LACTATE [Concomitant]
     Dosage: 02 MG
     Route: 048
     Dates: start: 20120717
  67. SODIUM VALPROATE [Concomitant]
     Indication: SCHIZOPHRENIA, PARANOID TYPE
     Dosage: 800 MG
     Route: 048
     Dates: start: 20121217

REACTIONS (3)
  - Extrapyramidal disorder [Not Recovered/Not Resolved]
  - Pneumonia [Unknown]
  - General physical health deterioration [Unknown]
